FAERS Safety Report 18289150 (Version 11)
Quarter: 2023Q4

REPORT INFORMATION
  Report Type: Spontaneous
  Country: US (occurrence: US)
  Receive Date: 20200921
  Receipt Date: 20231221
  Transmission Date: 20240109
  Serious: No
  Sender: FDA-Public Use
  Company Number: US-PFIZER INC-2020361792

PATIENT
  Age: 81 Year
  Sex: Female
  Weight: 53.968 kg

DRUGS (26)
  1. IBRANCE [Suspect]
     Active Substance: PALBOCICLIB
     Indication: Breast cancer female
     Dosage: DAILY FOR 21 OF 28 DAYS/ 1 DAILY FOR 21 DAYS
     Route: 048
     Dates: start: 20200925, end: 20201124
  2. IBRANCE [Suspect]
     Active Substance: PALBOCICLIB
     Dosage: DAILY FOR 21 OF 28 DAYS/1 DAILY FOR 21 DAYS
     Route: 048
  3. IBRANCE [Suspect]
     Active Substance: PALBOCICLIB
     Dosage: 100 MG
  4. IBRANCE [Suspect]
     Active Substance: PALBOCICLIB
     Dosage: 150 MG
  5. IBRANCE [Suspect]
     Active Substance: PALBOCICLIB
     Dosage: 100 MG, DAILY
     Route: 048
  6. CALTRATE [CALCIUM CARBONATE;COLECALCIFEROL] [Concomitant]
     Dosage: UNK
  7. CENTRUM SILVER [ASCORBIC ACID;BETACAROTENE;BIOTIN;CALCIUM;CHROMIUM;COL [Concomitant]
     Dosage: UNK
  8. FASLODEX [Concomitant]
     Active Substance: FULVESTRANT
     Dosage: 250 MG/5ML SYRINGE
  9. IRON [Concomitant]
     Active Substance: IRON
     Dosage: UNK
  10. PROCRIT [Concomitant]
     Active Substance: ERYTHROPOIETIN
     Dosage: 10000/ML VIAL
  11. VITAMIN B12 [Concomitant]
     Active Substance: CYANOCOBALAMIN
     Dosage: UNK
  12. VITAMIN C [Concomitant]
     Active Substance: ASCORBIC ACID
     Dosage: 500 MG
  13. XGEVA [Concomitant]
     Active Substance: DENOSUMAB
     Dosage: 120 MG/1.7 VIAL
  14. CILOSTAZOL [Concomitant]
     Active Substance: CILOSTAZOL
     Dosage: 100 MG
  15. DOXYCYCLINE [Concomitant]
     Active Substance: DOXYCYCLINE
     Dosage: UNK
  16. ACETAMINOPHEN\HYDROCODONE [Concomitant]
     Active Substance: ACETAMINOPHEN\HYDROCODONE
     Dosage: UNK
  17. ELIQUIS [Concomitant]
     Active Substance: APIXABAN
     Dosage: UNK
  18. AMLODIPINE [Concomitant]
     Active Substance: AMLODIPINE BESYLATE
     Dosage: UNK
  19. METOPROLOL TARTRATE [Concomitant]
     Active Substance: METOPROLOL TARTRATE
     Dosage: UNK (5 MG/5 ML VIAL)
  20. OXYBUTYNIN [Concomitant]
     Active Substance: OXYBUTYNIN
     Dosage: UNK
  21. TAMSULOSIN [Concomitant]
     Active Substance: TAMSULOSIN
     Dosage: UNK
  22. GENTAMICIN [Concomitant]
     Active Substance: GENTAMICIN
     Dosage: UNK
  23. DOXYCYCLINE HYCLATE [Concomitant]
     Active Substance: DOXYCYCLINE HYCLATE
     Dosage: 100 MG
  24. CLOPIDOGREL [Concomitant]
     Active Substance: CLOPIDOGREL BISULFATE
     Dosage: 75 MG
  25. CALTRATE WITH VITAMIN D [Concomitant]
     Active Substance: CALCIUM CARBONATE\CHOLECALCIFEROL
     Dosage: UNK
  26. PRAVASTATIN SODIUM [Concomitant]
     Active Substance: PRAVASTATIN SODIUM
     Dosage: 10 MG

REACTIONS (9)
  - Neoplasm progression [Unknown]
  - Full blood count decreased [Unknown]
  - Asthenia [Unknown]
  - Haemoglobin decreased [Unknown]
  - Fatigue [Unknown]
  - Anxiety [Unknown]
  - Frustration tolerance decreased [Unknown]
  - Ovarian mass [Unknown]
  - Off label use [Unknown]

NARRATIVE: CASE EVENT DATE: 20201124
